FAERS Safety Report 20210024 (Version 1)
Quarter: 2021Q4

REPORT INFORMATION
  Report Type: Spontaneous
  Country: US (occurrence: US)
  Receive Date: 20211221
  Receipt Date: 20211221
  Transmission Date: 20220303
  Serious: Yes (Hospitalization)
  Sender: FDA-Public Use
  Company Number: US-CIPLA LTD.-2021US08116

PATIENT

DRUGS (2)
  1. BUDESONIDE [Suspect]
     Active Substance: BUDESONIDE
     Indication: Product used for unknown indication
     Dosage: UNK, FOR 2 DAYS
     Dates: start: 20211119, end: 202111
  2. BUDESONIDE [Suspect]
     Active Substance: BUDESONIDE
     Dosage: UNK
     Dates: start: 20211201

REACTIONS (2)
  - Adverse event [Unknown]
  - Liquid product physical issue [Unknown]

NARRATIVE: CASE EVENT DATE: 20211101
